FAERS Safety Report 4968904-9 (Version None)
Quarter: 2006Q2

REPORT INFORMATION
  Report Type: 
  Country: None (occurrence: None)
  Receive Date: 20060411
  Receipt Date: 20050915
  Transmission Date: 20061013
  Serious: Yes (Hospitalization, Disabling)
  Sender: FDA-Public Use
  Company Number: US-MERCK-0509USA03170

PATIENT
  Age: 57 Year
  Sex: Male
  Weight: 73 kg

DRUGS (13)
  1. VIOXX [Suspect]
     Indication: ARTHRITIS
     Route: 048
     Dates: start: 20000106, end: 20040227
  2. VIOXX [Suspect]
     Indication: BACK PAIN
     Route: 048
     Dates: start: 20000106, end: 20040227
  3. CARDIZEM CD [Concomitant]
     Route: 065
  4. PRILOSEC [Concomitant]
     Route: 048
  5. LIPITOR [Concomitant]
     Route: 065
  6. ASPIRIN [Concomitant]
     Route: 065
  7. AMBIEN [Concomitant]
     Route: 065
  8. HYDROCODONE HYDROCHLORIDE [Concomitant]
     Route: 065
  9. BUSPAR [Concomitant]
     Route: 065
  10. VIAGRA [Concomitant]
     Route: 065
  11. LIBRIUM [Concomitant]
     Route: 065
  12. AMITRIPTYLINE HYDROCHLORIDE [Concomitant]
     Route: 065
  13. TRAZODONE HYDROCHLORIDE [Concomitant]
     Route: 065

REACTIONS (19)
  - ANGINA PECTORIS [None]
  - AORTIC ANEURYSM [None]
  - ARRHYTHMIA [None]
  - ARTHRALGIA [None]
  - BRADYCARDIA [None]
  - BRONCHITIS [None]
  - CEREBROVASCULAR ACCIDENT [None]
  - CHEST PAIN [None]
  - COUGH [None]
  - DIZZINESS [None]
  - DYSPNOEA [None]
  - GASTROOESOPHAGEAL REFLUX DISEASE [None]
  - HEADACHE [None]
  - NEPHROLITHIASIS [None]
  - NIGHT SWEATS [None]
  - PARAESTHESIA [None]
  - ROAD TRAFFIC ACCIDENT [None]
  - TRANSIENT ISCHAEMIC ATTACK [None]
  - UROSEPSIS [None]
